FAERS Safety Report 13149160 (Version 1)
Quarter: 2017Q1

REPORT INFORMATION
  Report Type: Report from Study
  Country: US (occurrence: US)
  Receive Date: 20170125
  Receipt Date: 20170125
  Transmission Date: 20170428
  Serious: Yes (Hospitalization, Other)
  Sender: FDA-Public Use
  Company Number: US-GILEAD-2016-0251443

PATIENT
  Age: 5 Year
  Sex: Male
  Weight: 13.8 kg

DRUGS (23)
  1. HEPARIN [Concomitant]
     Active Substance: HEPARIN SODIUM
  2. ONDANSETRON [Concomitant]
     Active Substance: ONDANSETRON
  3. BECLOMETHASONE                     /00212602/ [Concomitant]
     Active Substance: BECLOMETHASONE
  4. CALCIUM CARBONATE. [Concomitant]
     Active Substance: CALCIUM CARBONATE
  5. LACTULOSE. [Concomitant]
     Active Substance: LACTULOSE
  6. ACETAMINOPHEN. [Concomitant]
     Active Substance: ACETAMINOPHEN
  7. LEVOTHYROXINE. [Concomitant]
     Active Substance: LEVOTHYROXINE
  8. FAT EMULSION NOS [Concomitant]
     Active Substance: EGG PHOSPHOLIPIDS\SAFFLOWER OIL\SOYBEAN OIL
  9. AMBRISENTAN [Suspect]
     Active Substance: AMBRISENTAN
     Indication: PULMONARY HYPERTENSION
     Dosage: 2.5 MG, QD
     Route: 048
  10. ANTITHROMBIN III [Concomitant]
     Active Substance: ANTITHROMBIN III HUMAN
  11. ALTEPLASE [Concomitant]
     Active Substance: ALTEPLASE
  12. CEFAZOLIN [Concomitant]
     Active Substance: CEFAZOLIN
  13. DEXTROSE. [Concomitant]
     Active Substance: DEXTROSE
  14. OXYCODONE [Concomitant]
     Active Substance: OXYCODONE
  15. AMBRISENTAN [Suspect]
     Active Substance: AMBRISENTAN
     Indication: HEART DISEASE CONGENITAL
     Dosage: 5 MG, UNK
     Route: 048
  16. ALBUMIN HUMAN [Concomitant]
     Active Substance: ALBUMIN HUMAN
  17. ENOXAPARIN [Concomitant]
     Active Substance: ENOXAPARIN
  18. MORPHINE [Concomitant]
     Active Substance: MORPHINE
  19. NUTROPIN [Concomitant]
     Active Substance: SOMATROPIN
  20. SILDENAFIL. [Concomitant]
     Active Substance: SILDENAFIL
  21. ALBUTEROL HFA [Concomitant]
     Active Substance: ALBUTEROL SULFATE
  22. DIPHENHYDRAMINE. [Concomitant]
     Active Substance: DIPHENHYDRAMINE
  23. OCULAR LUBRICANT                   /00445101/ [Concomitant]

REACTIONS (3)
  - Off label use [Not Recovered/Not Resolved]
  - Univentricular heart [Unknown]
  - Pleural effusion [Unknown]
